FAERS Safety Report 14158951 (Version 1)
Quarter: 2017Q4

REPORT INFORMATION
  Report Type: Spontaneous
  Country: US (occurrence: US)
  Receive Date: 20171103
  Receipt Date: 20171103
  Transmission Date: 20180321
  Serious: Yes (Life-Threatening)
  Sender: FDA-Public Use
  Company Number: US-XTTRIUM LABORATORIES, INC-2033206

PATIENT

DRUGS (1)
  1. CHLORHEXIDINE GLUCONATE. [Suspect]
     Active Substance: CHLORHEXIDINE GLUCONATE
     Route: 048

REACTIONS (1)
  - Burkholderia cepacia complex infection [Not Recovered/Not Resolved]

NARRATIVE: CASE EVENT DATE: 20170808
